FAERS Safety Report 4855616-5 (Version None)
Quarter: 2005Q4

REPORT INFORMATION
  Report Type: 
  Country: None (occurrence: None)
  Receive Date: 20051216
  Receipt Date: 20030624
  Transmission Date: 20060501
  Serious: Yes (Death, Hospitalization)
  Sender: FDA-Public Use
  Company Number: PHHO2003FR07999

PATIENT
  Age: 77 Year
  Sex: Female
  Weight: 65 kg

DRUGS (1)
  1. TAMOXIFEN CITRATE [Suspect]
     Indication: BREAST CANCER
     Route: 048
     Dates: start: 20010220

REACTIONS (14)
  - COLITIS ISCHAEMIC [None]
  - DEHYDRATION [None]
  - DIARRHOEA [None]
  - EMBOLISM [None]
  - GASTROENTERITIS [None]
  - HAEMATOCHEZIA [None]
  - HAEMODYNAMIC INSTABILITY [None]
  - HYPOKALAEMIA [None]
  - HYPOTENSION [None]
  - INTESTINAL INFARCTION [None]
  - LEUKOPENIA [None]
  - RENAL FAILURE [None]
  - SEPTIC SHOCK [None]
  - VOMITING [None]
